FAERS Safety Report 5027761-5 (Version None)
Quarter: 2006Q2

REPORT INFORMATION
  Report Type: 
  Country: None (occurrence: None)
  Receive Date: 20060610
  Receipt Date: 20060610
  Transmission Date: 20061013
  Serious: Yes (Death)
  Sender: FDA-Public Use
  Company Number: None

PATIENT
  Sex: Female
  Weight: 87.7 kg

DRUGS (2)
  1. CYTARABINE [Suspect]
     Dosage: 1337 MG
     Dates: start: 20060509
  2. DAUNORUBICIN HCL [Suspect]
     Dosage: 342 MG
     Dates: start: 20060509

REACTIONS (7)
  - ASTHENIA [None]
  - CARDIAC DISORDER [None]
  - CARDIAC FAILURE [None]
  - EJECTION FRACTION DECREASED [None]
  - ENTEROCOCCAL BACTERAEMIA [None]
  - LIVER FUNCTION TEST ABNORMAL [None]
  - RESPIRATORY ARREST [None]
